FAERS Safety Report 7350313-9 (Version None)
Quarter: 2011Q1

REPORT INFORMATION
  Report Type: 
  Country: None (occurrence: None)
  Receive Date: 20110222
  Receipt Date: 20101228
  Transmission Date: 20110831
  Serious: No
  Sender: FDA-Public Use
  Company Number: 024642

PATIENT
  Sex: Female

DRUGS (1)
  1. LACOSAMIDE [Suspect]
     Dates: start: 20100101

REACTIONS (3)
  - INSOMNIA [None]
  - TACHYPHRENIA [None]
  - TREMOR [None]
